FAERS Safety Report 7656631-9 (Version None)
Quarter: 2011Q3

REPORT INFORMATION
  Report Type: 
  Country: None (occurrence: None)
  Receive Date: 20110801
  Receipt Date: 20110720
  Transmission Date: 20111222
  Serious: Yes (Hospitalization)
  Sender: FDA-Public Use
  Company Number: 2011SP030441

PATIENT
  Age: 24 Year
  Sex: Female

DRUGS (1)
  1. CERAZETTE (DESOGESTREL) [Suspect]
     Indication: CONTRACEPTION
     Dates: start: 20080101

REACTIONS (2)
  - BRONCHITIS [None]
  - PULMONARY EMBOLISM [None]
